FAERS Safety Report 15171571 (Version 1)
Quarter: 2018Q3

REPORT INFORMATION
  Report Type: Report from Study
  Country: FR (occurrence: FR)
  Receive Date: 20180720
  Receipt Date: 20180720
  Transmission Date: 20181010
  Serious: Yes (Other)
  Sender: FDA-Public Use
  Company Number: FR-ROCHE-2142482

PATIENT
  Age: 78 Year
  Sex: Female
  Weight: 70 kg

DRUGS (66)
  1. RITUXIMAB. [Suspect]
     Active Substance: RITUXIMAB
     Indication: B-CELL LYMPHOMA
     Dosage: DATE OF LAST DOSE OF RITUXIMAB PRIOR TO SAE: 26/JUN/2012
     Route: 042
     Dates: start: 20120626
  2. VALACICLOVIR [Concomitant]
     Active Substance: VALACYCLOVIR HYDROCHLORIDE
     Route: 065
     Dates: start: 20120626, end: 20130404
  3. METHYLPREDNISOLONE. [Concomitant]
     Active Substance: METHYLPREDNISOLONE
     Route: 065
     Dates: start: 20120626, end: 20120626
  4. CONTRAMAL [Concomitant]
     Active Substance: TRAMADOL HYDROCHLORIDE
     Route: 065
     Dates: start: 20130417, end: 20130423
  5. PARACETAMOL [Concomitant]
     Active Substance: ACETAMINOPHEN
     Indication: INFLUENZA
     Route: 065
     Dates: start: 20150201, end: 20150228
  6. SERETIDE [Concomitant]
     Active Substance: FLUTICASONE PROPIONATE\SALMETEROL XINAFOATE
     Route: 065
     Dates: start: 20150706, end: 20160504
  7. PREVNAR 13 [Concomitant]
     Active Substance: PNEUMOCOCCAL 13-VALENT CONJUGATE VACCINE
     Route: 065
     Dates: start: 20160309, end: 20160309
  8. RITUXIMAB. [Suspect]
     Active Substance: RITUXIMAB
     Dosage: DATE OF LAST DOSE OF RITUXIMAB PRIOR TO SAE: 10/JUL/2013
     Route: 058
     Dates: start: 20121226
  9. GRANOCYTE [Concomitant]
     Active Substance: LENOGRASTIM
     Indication: WHITE BLOOD CELL COUNT DECREASED
     Route: 065
     Dates: start: 20120816, end: 20120819
  10. GRANOCYTE [Concomitant]
     Active Substance: LENOGRASTIM
     Route: 065
     Dates: start: 20120917, end: 20120917
  11. GRANOCYTE [Concomitant]
     Active Substance: LENOGRASTIM
     Route: 065
     Dates: start: 20160718, end: 20160720
  12. DAFLON [Concomitant]
     Route: 065
     Dates: start: 20121008
  13. ROCEPHINE [Concomitant]
     Active Substance: CEFTRIAXONE SODIUM
     Route: 065
     Dates: start: 20160718, end: 20160723
  14. FUNGIZONE [Concomitant]
     Active Substance: AMPHOTERICIN B
     Route: 065
     Dates: start: 20130401, end: 20130407
  15. ZELITREX [Concomitant]
     Active Substance: VALACYCLOVIR HYDROCHLORIDE
     Route: 065
     Dates: start: 20130515
  16. PYOSTACINE [Concomitant]
     Active Substance: PRISTINAMYCIN
     Indication: RHINITIS
     Route: 065
     Dates: start: 20151006, end: 20151010
  17. ORACILLINE [Concomitant]
     Active Substance: PENICILLIN V
     Indication: RHINITIS
     Route: 065
     Dates: start: 20160113
  18. BENDAMUSTINE [Suspect]
     Active Substance: BENDAMUSTINE
     Indication: PRODUCT USED FOR UNKNOWN INDICATION
     Route: 065
  19. RED BLOOD CELLS [Concomitant]
     Active Substance: HUMAN RED BLOOD CELL
     Dosage: 2 PACKS
     Route: 065
     Dates: start: 20120907, end: 20120907
  20. AUGMENTIN [Concomitant]
     Active Substance: AMOXICILLIN\CLAVULANATE POTASSIUM
     Indication: BRONCHITIS
     Route: 065
     Dates: start: 20121120, end: 20121124
  21. TRIFLUCAN [Concomitant]
     Active Substance: FLUCONAZOLE
     Route: 065
     Dates: start: 20130408, end: 20130417
  22. FUCIDINE [Concomitant]
     Active Substance: FUSIDIC ACID
     Dosage: 2 LOCAL APPLICATION
     Route: 065
     Dates: start: 20160309, end: 20160324
  23. RIMIFON [Concomitant]
     Active Substance: ISONIAZID
     Route: 065
     Dates: start: 20160309, end: 20160504
  24. INDACATEROL [Concomitant]
     Active Substance: INDACATEROL
     Indication: CHRONIC OBSTRUCTIVE PULMONARY DISEASE
     Route: 065
     Dates: start: 20160504
  25. BACTRIM [Concomitant]
     Active Substance: SULFAMETHOXAZOLE\TRIMETHOPRIM
     Route: 065
     Dates: start: 20120626, end: 20130710
  26. BACTRIM [Concomitant]
     Active Substance: SULFAMETHOXAZOLE\TRIMETHOPRIM
     Route: 065
     Dates: start: 20130827
  27. RED BLOOD CELLS [Concomitant]
     Active Substance: HUMAN RED BLOOD CELL
     Indication: ANAEMIA
     Dosage: 2 PACKS
     Route: 065
     Dates: start: 20120628, end: 20120628
  28. VASTAREL [Concomitant]
     Active Substance: TRIMETAZIDINE DIHYDROCHLORIDE
     Route: 065
     Dates: start: 20121008
  29. BIONOLYTE [Concomitant]
     Indication: HYPONATRAEMIA
     Route: 065
     Dates: start: 20121005, end: 20121008
  30. POLARAMINE [Concomitant]
     Active Substance: DEXCHLORPHENIRAMINE MALEATE
     Route: 065
     Dates: start: 20120717
  31. CIPROFLOXACINE [Concomitant]
     Active Substance: CIPROFLOXACIN
     Route: 065
     Dates: start: 20120903, end: 20120909
  32. CEFIXIME. [Concomitant]
     Active Substance: CEFIXIME
     Route: 065
     Dates: start: 20120816, end: 20120823
  33. ROCEPHINE [Concomitant]
     Active Substance: CEFTRIAXONE SODIUM
     Indication: FEBRILE NEUTROPENIA
     Route: 065
     Dates: start: 20121005, end: 20121009
  34. AUGMENTIN [Concomitant]
     Active Substance: AMOXICILLIN\CLAVULANATE POTASSIUM
     Route: 065
     Dates: start: 20130206, end: 20130212
  35. ZOVIRAX [Concomitant]
     Active Substance: ACYCLOVIR
     Route: 065
     Dates: start: 20130401, end: 20130407
  36. ESOMEPRAZOLE [Concomitant]
     Active Substance: ESOMEPRAZOLE
     Indication: ABDOMINAL PAIN UPPER
     Route: 065
     Dates: start: 20141203
  37. CLAMOXYL (FRANCE) [Concomitant]
     Active Substance: AMOXICILLIN
     Indication: BRONCHITIS
     Route: 065
     Dates: start: 20150509, end: 20150513
  38. EXOMUC [Concomitant]
     Active Substance: ACETYLCYSTEINE
     Indication: BRONCHITIS
     Route: 065
     Dates: start: 20150509, end: 20150513
  39. SOLUPRED (FRANCE) [Concomitant]
     Active Substance: PREDNISOLONE SODIUM METAZOATE
     Route: 065
     Dates: start: 20150524, end: 20150526
  40. FLIXOTIDE [Concomitant]
     Active Substance: FLUTICASONE PROPIONATE
     Route: 065
     Dates: start: 20160504
  41. RITUXIMAB. [Suspect]
     Active Substance: RITUXIMAB
     Dosage: DATE OF LAST DOSE OF RITUXIMAB PRIOR TO SAE: 19/FEB/2014
     Route: 058
     Dates: start: 20130904
  42. RITUXIMAB. [Suspect]
     Active Substance: RITUXIMAB
     Dosage: DATE OF LAST DOSE OF RITUXIMAB PRIOR TO SAE: 27/MAY/2015
     Route: 058
     Dates: start: 20141008
  43. VALACICLOVIR [Concomitant]
     Active Substance: VALACYCLOVIR HYDROCHLORIDE
     Route: 065
     Dates: start: 20130515
  44. GRANOCYTE [Concomitant]
     Active Substance: LENOGRASTIM
     Indication: NEUTROPHIL COUNT DECREASED
     Route: 065
     Dates: start: 20120730, end: 20120801
  45. GRANOCYTE [Concomitant]
     Active Substance: LENOGRASTIM
     Route: 065
     Dates: start: 20130426, end: 20130427
  46. BIONOLYTE [Concomitant]
     Indication: HYPOKALAEMIA
  47. METHYLPREDNISOLONE. [Concomitant]
     Active Substance: METHYLPREDNISOLONE
     Route: 065
     Dates: start: 20120717
  48. CEFIXIME. [Concomitant]
     Active Substance: CEFIXIME
     Route: 065
     Dates: start: 20120903, end: 20120909
  49. PHLOROGLUCINOL [Concomitant]
     Active Substance: PHLOROGLUCINOL
     Indication: ABDOMINAL PAIN
     Route: 065
     Dates: start: 20141203
  50. PYOSTACINE [Concomitant]
     Active Substance: PRISTINAMYCIN
     Indication: BRONCHITIS
     Route: 065
     Dates: start: 20150519, end: 20150623
  51. RITUXIMAB. [Suspect]
     Active Substance: RITUXIMAB
     Dosage: DATE OF LAST DOSE OF RITUXIMAB PRIOR TO SAE: 13/AUG/2014
     Route: 058
     Dates: start: 20140416
  52. RITUXIMAB. [Suspect]
     Active Substance: RITUXIMAB
     Dosage: DATE OF LAST DOSE OF RITUXIMAB PRIOR TO SAE: 04/MAY/2016
     Route: 058
     Dates: start: 20150722
  53. BACTRIM [Concomitant]
     Active Substance: SULFAMETHOXAZOLE\TRIMETHOPRIM
     Route: 065
     Dates: start: 20130715, end: 20130825
  54. GRANOCYTE [Concomitant]
     Active Substance: LENOGRASTIM
     Indication: FEBRILE NEUTROPENIA
     Route: 065
     Dates: start: 20120830, end: 20120901
  55. GRANOCYTE [Concomitant]
     Active Substance: LENOGRASTIM
     Route: 065
     Dates: start: 20121004, end: 20121005
  56. FOLIC ACID. [Concomitant]
     Active Substance: FOLIC ACID
     Route: 065
     Dates: start: 20120626
  57. GRANOCYTE [Concomitant]
     Active Substance: LENOGRASTIM
     Route: 065
     Dates: start: 20120903, end: 20120909
  58. POLARAMINE [Concomitant]
     Active Substance: DEXCHLORPHENIRAMINE MALEATE
     Route: 065
     Dates: start: 20120626, end: 20120626
  59. CIPROFLOXACINE [Concomitant]
     Active Substance: CIPROFLOXACIN
     Route: 065
     Dates: start: 20120816, end: 20120823
  60. ZITHROMAX [Concomitant]
     Active Substance: AZITHROMYCIN DIHYDRATE
     Indication: BRONCHITIS
     Route: 065
     Dates: start: 20130220, end: 20130225
  61. SOLUPRED (FRANCE) [Concomitant]
     Active Substance: PREDNISOLONE SODIUM METAZOATE
     Indication: BRONCHITIS
     Route: 065
     Dates: start: 20150519, end: 20150523
  62. TAMIFLU [Concomitant]
     Active Substance: OSELTAMIVIR PHOSPHATE
     Route: 065
     Dates: start: 20160309, end: 20160313
  63. RITUXIMAB. [Suspect]
     Active Substance: RITUXIMAB
     Indication: B-CELL LYMPHOMA
     Dosage: DATE OF LAST DOSE OF RITUXIMAB PRIOR TO SAE: 27/NOV/2012
     Route: 058
     Dates: start: 20120717
  64. RITUXIMAB. [Suspect]
     Active Substance: RITUXIMAB
     Dosage: DATE OF LAST DOSE OF RITUXIMAB PRIOR TO SAE: 20/OCT/2016
     Route: 058
     Dates: start: 20160629
  65. GRANOCYTE [Concomitant]
     Active Substance: LENOGRASTIM
     Route: 065
     Dates: start: 20130412, end: 20130414
  66. SOLUPRED (FRANCE) [Concomitant]
     Active Substance: PREDNISOLONE SODIUM METAZOATE
     Route: 065
     Dates: start: 20150527, end: 20150527

REACTIONS (1)
  - Invasive ductal breast carcinoma [Not Recovered/Not Resolved]

NARRATIVE: CASE EVENT DATE: 20160405
